FAERS Safety Report 18575258 (Version 2)
Quarter: 2020Q4

REPORT INFORMATION
  Report Type: Spontaneous
  Country: AR (occurrence: AR)
  Receive Date: 20201203
  Receipt Date: 20201218
  Transmission Date: 20210114
  Serious: Yes (Hospitalization, Other)
  Sender: FDA-Public Use
  Company Number: AR-PFIZER INC-2020476339

PATIENT
  Age: 48 Year
  Sex: Male

DRUGS (2)
  1. XALKORI [Suspect]
     Active Substance: CRIZOTINIB
     Indication: NON-SMALL CELL LUNG CANCER METASTATIC
     Dosage: 250 MG, 2X/DAY
     Route: 048
     Dates: start: 20191204, end: 20200810
  2. XALKORI [Suspect]
     Active Substance: CRIZOTINIB
     Dosage: 250 MG, 1X/DAY
     Route: 048
     Dates: start: 202011, end: 2020

REACTIONS (9)
  - Hepatotoxicity [Recovered/Resolved]
  - Tumour inflammation [Unknown]
  - Headache [Unknown]
  - Seizure [Unknown]
  - Neoplasm progression [Unknown]
  - Dizziness [Unknown]
  - Amnesia [Recovering/Resolving]
  - General physical health deterioration [Unknown]
  - Peripheral swelling [Unknown]

NARRATIVE: CASE EVENT DATE: 20200810
